FAERS Safety Report 20667219 (Version 1)
Quarter: 2022Q2

REPORT INFORMATION
  Report Type: Spontaneous
  Country: US (occurrence: US)
  Receive Date: 20220404
  Receipt Date: 20220404
  Transmission Date: 20220721
  Serious: No
  Sender: FDA-Public Use
  Company Number: US-SANOFI-01041806

PATIENT
  Age: 19 Year
  Sex: Male

DRUGS (1)
  1. LANTUS SOLOSTAR [Suspect]
     Active Substance: INSULIN GLARGINE
     Indication: Type 1 diabetes mellitus
     Dosage: DRUG STRUCTURE DOSAGE : 18 UNITS DRUG INTERVAL DOSAGE : TWICE DAILY DRUG TREATMENT DURATION:
     Route: 058

REACTIONS (1)
  - Product use issue [Unknown]
